FAERS Safety Report 5344928-7 (Version None)
Quarter: 2007Q2

REPORT INFORMATION
  Report Type: 
  Country: None (occurrence: None)
  Receive Date: 20070416
  Receipt Date: 20061219
  Transmission Date: 20071010
  Serious: No
  Sender: FDA-Public Use
  Company Number: 2005SP002324

PATIENT
  Age: 58 Year
  Sex: Female
  Weight: 55.7924 kg

DRUGS (6)
  1. LUNESTA [Suspect]
     Indication: INSOMNIA
     Dosage: 2 MG; HS; ORAL
     Route: 048
     Dates: start: 20050810, end: 20050801
  2. LUNESTA [Suspect]
     Indication: PAIN
     Dosage: 2 MG; HS; ORAL
     Route: 048
     Dates: start: 20050810, end: 20050801
  3. AMBIEN [Concomitant]
  4. NEURONTIN [Concomitant]
  5. SOMA [Concomitant]
  6. ESTROGENS CONJUGATED [Concomitant]

REACTIONS (1)
  - INSOMNIA [None]
